FAERS Safety Report 4547280-X (Version None)
Quarter: 2005Q1

REPORT INFORMATION
  Report Type: 
  Country: None (occurrence: None)
  Receive Date: 20050105
  Receipt Date: 20041203
  Transmission Date: 20050727
  Serious: Yes (Hospitalization)
  Sender: FDA-Public Use
  Company Number: 13493

PATIENT
  Age: 23 Year
  Sex: Female

DRUGS (2)
  1. REBIF [Suspect]
     Indication: MULTIPLE SCLEROSIS
     Dosage: 44 MCG TIW SC
     Route: 058
     Dates: start: 20040416, end: 20041201
  2. ORTHO TRI-CYCLEN [Concomitant]

REACTIONS (2)
  - HEPATIC FAILURE [None]
  - REFUSAL OF TREATMENT BY PATIENT [None]
